FAERS Safety Report 8181212-0 (Version None)
Quarter: 2012Q1

REPORT INFORMATION
  Report Type: 
  Country: None (occurrence: None)
  Receive Date: 20120302
  Receipt Date: 20120224
  Transmission Date: 20120608
  Serious: Yes (Other)
  Sender: FDA-Public Use
  Company Number: DE-GLAXOSMITHKLINE-D0074618A

PATIENT
  Sex: Male

DRUGS (2)
  1. PHENYTOIN [Concomitant]
     Indication: EPILEPSY
     Route: 065
  2. POTIGA [Suspect]
     Indication: EPILEPSY
     Route: 048
     Dates: end: 20120224

REACTIONS (6)
  - PROTHROMBIN TIME PROLONGED [None]
  - HYPERSENSITIVITY [None]
  - FEBRILE INFECTION [None]
  - RASH [None]
  - HYPERBILIRUBINAEMIA [None]
  - ANTICONVULSANT DRUG LEVEL DECREASED [None]
